FAERS Safety Report 7674025-7 (Version None)
Quarter: 2011Q3

REPORT INFORMATION
  Report Type: 
  Country: None (occurrence: None)
  Receive Date: 20110810
  Receipt Date: 20110809
  Transmission Date: 20111222
  Serious: Yes (Other)
  Sender: FDA-Public Use
  Company Number: US-BRISTOL-MYERS SQUIBB COMPANY-15956345

PATIENT
  Age: 62 Year
  Sex: Male
  Weight: 62 kg

DRUGS (6)
  1. DASATINIB [Suspect]
     Indication: HEPATIC NEOPLASM MALIGNANT
     Dosage: LAST DOSE:11MAR10. CYCLE 28DAYS 100MG PO BID TOTAL NO OF COURSE:4
     Route: 048
     Dates: start: 20100211
  2. ZOCOR [Concomitant]
  3. GLIMEPIRIDE [Concomitant]
  4. VIREAD [Concomitant]
  5. AMBIEN [Concomitant]
  6. METFORMIN HCL [Concomitant]

REACTIONS (1)
  - HYPONATRAEMIA [None]
